FAERS Safety Report 5415997-0 (Version None)
Quarter: 2007Q3

REPORT INFORMATION
  Report Type: 
  Country: None (occurrence: None)
  Receive Date: 20070815
  Receipt Date: 20070803
  Transmission Date: 20080115
  Serious: Yes (Other)
  Sender: FDA-Public Use
  Company Number: DE-PFIZER INC-2007066210

PATIENT
  Sex: Male

DRUGS (4)
  1. CHAMPIX [Suspect]
     Route: 048
  2. TROMETAMOL [Concomitant]
  3. LYRICA [Concomitant]
  4. ANTIDEPRESSANTS [Concomitant]

REACTIONS (1)
  - GAMMA-GLUTAMYLTRANSFERASE INCREASED [None]
